FAERS Safety Report 9263772 (Version 1)
Quarter: 2013Q2

REPORT INFORMATION
  Report Type: Spontaneous
  Country: US (occurrence: US)
  Receive Date: 20130430
  Receipt Date: 20130430
  Transmission Date: 20140414
  Serious: No
  Sender: FDA-Public Use
  Company Number: US-BAYER-2013-054026

PATIENT
  Sex: Male

DRUGS (2)
  1. AVELOX [Suspect]
  2. XYREM [Suspect]

REACTIONS (1)
  - Rash [None]
